FAERS Safety Report 6760491-8 (Version None)
Quarter: 2010Q2

REPORT INFORMATION
  Report Type: 
  Country: None (occurrence: None)
  Receive Date: 20100604
  Receipt Date: 20080729
  Transmission Date: 20101027
  Serious: Yes (Other)
  Sender: FDA-Public Use
  Company Number: 2008BH009513

PATIENT
  Age: 14 Month
  Sex: Male
  Weight: 11.5 kg

DRUGS (3)
  1. ADVATE [Suspect]
     Indication: FACTOR VIII DEFICIENCY
     Dosage: 518 IU ; PRN ; IV
     Route: 042
     Dates: start: 20070508, end: 20080218
  2. ADVATE [Suspect]
     Indication: HAEMORRHAGE
     Dosage: 518 IU ; PRN ; IV
     Route: 042
     Dates: start: 20070508, end: 20080218
  3. FACTOR VIIA [Concomitant]

REACTIONS (1)
  - FACTOR VIII INHIBITION [None]
